FAERS Safety Report 9453221 (Version 2)
Quarter: 2013Q3

REPORT INFORMATION
  Report Type: Spontaneous
  Country: US (occurrence: US)
  Receive Date: 20130812
  Receipt Date: 20130821
  Transmission Date: 20140515
  Serious: Yes (Other)
  Sender: FDA-Public Use
  Company Number: US-PFIZER INC-2013232737

PATIENT
  Age: 72 Year
  Sex: Female
  Weight: 100.68 kg

DRUGS (18)
  1. LYRICA [Suspect]
     Indication: NEUROPATHY PERIPHERAL
     Dosage: 100 MG, 3X/DAY
     Dates: start: 2001
  2. LYRICA [Suspect]
     Indication: PAIN IN EXTREMITY
  3. LYRICA [Suspect]
     Indication: NEUROPATHY PERIPHERAL
  4. METFORMIN [Concomitant]
     Indication: DIABETES MELLITUS
     Dosage: UNK
  5. GLIPIZIDE [Concomitant]
     Indication: DIABETES MELLITUS
     Dosage: UNK
  6. LISINOPRIL [Concomitant]
     Indication: HYPERTENSION
     Dosage: UNK
  7. HYDROCHLOROTHIAZIDE [Concomitant]
     Dosage: 25 MG, 1X/DAY
     Route: 048
     Dates: start: 20120811
  8. GLUCOPHAGE XR [Concomitant]
     Dosage: 500 MG, TABLET ER 24HR 4 ORAL DAILY
     Dates: start: 20130103
  9. GLIPIZIDE XL [Concomitant]
     Dosage: 10 MG, TABLET ER 24HR 1 ORAL DAILY
     Dates: start: 20120823
  10. TRILIPIX [Concomitant]
     Dosage: 135 MG, 1X/DAY
     Route: 048
  11. POTASSIUM CHLORIDE [Concomitant]
     Dosage: 20 MEQ, 1X/DAY
  12. METOPROLOL TARTRATE [Concomitant]
     Dosage: 25 MG, TABLET 1/4 ORAL TWO TIMES DAILY
     Route: 048
  13. FUROSEMIDE [Concomitant]
     Dosage: 40 MG, 1X/DAY
     Route: 048
  14. FISH OIL [Concomitant]
     Dosage: 1000 MG, 2X/DAY
     Route: 048
     Dates: start: 20100607
  15. VITAMIN D3 [Concomitant]
     Dosage: 2000 UNIT CAPSULE 1 ORAL DAILY
     Route: 048
  16. CALCIUM 600 + D [Concomitant]
     Dosage: 600-400 MG UNIT TABLET 2 QD
     Dates: start: 20090130
  17. FIBER PLUS CALCIUM [Concomitant]
     Dosage: UNK
  18. ASPIRINE [Concomitant]
     Dosage: 81 MG, 1X/DAY

REACTIONS (4)
  - Myocardial infarction [Unknown]
  - Pleural effusion [Unknown]
  - Chest pain [Unknown]
  - Weight increased [Unknown]
